FAERS Safety Report 10772492 (Version 1)
Quarter: 2015Q1

REPORT INFORMATION
  Report Type: Report from Study
  Country: CA (occurrence: CA)
  Receive Date: 20150207
  Receipt Date: 20150207
  Transmission Date: 20150721
  Serious: Yes (Death, Hospitalization)
  Sender: FDA-Public Use
  Company Number: CA-JNJFOC-20150201638

PATIENT
  Sex: Male

DRUGS (2)
  1. ACETAMINOPHEN. [Suspect]
     Active Substance: ACETAMINOPHEN
     Route: 048
  2. ACETAMINOPHEN. [Suspect]
     Active Substance: ACETAMINOPHEN
     Indication: PRODUCT USED FOR UNKNOWN INDICATION
     Route: 048
     Dates: start: 20081107, end: 20081121

REACTIONS (11)
  - Encephalopathy [Fatal]
  - Brain oedema [Fatal]
  - Hepatic cirrhosis [Fatal]
  - Klebsiella bacteraemia [Fatal]
  - Overdose [Fatal]
  - Septic shock [Fatal]
  - Renal failure [Fatal]
  - Hepatic failure [Fatal]
  - Myocardial ischaemia [Fatal]
  - Jaw fracture [Fatal]
  - Respiratory failure [Fatal]
